APPROVED DRUG PRODUCT: COLY-MYCIN S
Active Ingredient: COLISTIN SULFATE; HYDROCORTISONE ACETATE; NEOMYCIN SULFATE; THONZONIUM BROMIDE
Strength: EQ 3MG BASE/ML;10MG/ML;EQ 3.3MG BASE/ML;0.5MG/ML
Dosage Form/Route: SUSPENSION/DROPS;OTIC
Application: N050356 | Product #001
Applicant: PH HEALTH LTD
Approved: Approved Prior to Jan 1, 1982 | RLD: Yes | RS: Yes | Type: RX